FAERS Safety Report 9415046 (Version 1)
Quarter: 2013Q3

REPORT INFORMATION
  Report Type: Spontaneous
  Country: GB (occurrence: GB)
  Receive Date: 20130723
  Receipt Date: 20130723
  Transmission Date: 20140515
  Serious: Yes (Disabling)
  Sender: FDA-Public Use
  Company Number: GB-WATSON-2013-12656

PATIENT
  Age: 74 Year
  Sex: Male

DRUGS (11)
  1. DIPROBASE                          /01132701/ [Concomitant]
     Indication: PRODUCT USED FOR UNKNOWN INDICATION
     Dosage: UNK
     Route: 065
     Dates: start: 20130427, end: 20130428
  2. DALTEPARIN [Concomitant]
     Indication: PRODUCT USED FOR UNKNOWN INDICATION
     Dosage: UNK
     Route: 065
     Dates: start: 20130516, end: 20130524
  3. SIMVASTATIN [Concomitant]
     Indication: PRODUCT USED FOR UNKNOWN INDICATION
     Dosage: UNK
     Route: 065
     Dates: start: 20130403, end: 20130501
  4. SIMVASTATIN [Concomitant]
     Dosage: UNK
     Route: 065
     Dates: start: 20130614
  5. CHLORPHENAMINE [Concomitant]
     Indication: PRODUCT USED FOR UNKNOWN INDICATION
     Dosage: UNK
     Route: 065
     Dates: start: 20130627
  6. DOXAZOSIN MESYLATE (UNKNOWN) [Suspect]
     Indication: PRODUCT USED FOR UNKNOWN INDICATION
     Dosage: UNK
     Route: 065
     Dates: start: 20130403, end: 20130501
  7. DOXAZOSIN MESYLATE (UNKNOWN) [Suspect]
     Dosage: UNK
     Route: 065
     Dates: start: 20130614
  8. WARFARIN SODIUM                    /00014804/ [Concomitant]
     Indication: PRODUCT USED FOR UNKNOWN INDICATION
     Dosage: UNK
     Route: 065
     Dates: start: 20130212, end: 20130409
  9. WARFARIN SODIUM                    /00014804/ [Concomitant]
     Dosage: UNK
     Route: 065
     Dates: start: 20130520
  10. BETAMETHASONE VALERATE W/CLOTRIMAZOLE [Concomitant]
     Indication: PRODUCT USED FOR UNKNOWN INDICATION
     Dosage: UNK
     Route: 065
     Dates: start: 20130427, end: 20130428
  11. BETAMETHASONE VALERATE W/CLOTRIMAZOLE [Concomitant]
     Dosage: UNK
     Route: 065
     Dates: start: 20130513, end: 20130520

REACTIONS (3)
  - Angioedema [Unknown]
  - Urticaria [Unknown]
  - Lip swelling [Unknown]
